FAERS Safety Report 26194119 (Version 1)
Quarter: 2025Q4

REPORT INFORMATION
  Report Type: Spontaneous
  Country: US (occurrence: US)
  Receive Date: 20251224
  Receipt Date: 20251224
  Transmission Date: 20260117
  Serious: Yes (Other)
  Sender: ABBVIE
  Company Number: US-ABBVIE-6601513

PATIENT
  Sex: Female
  Weight: 2.7216 kg

DRUGS (1)
  1. RINVOQ [Suspect]
     Active Substance: UPADACITINIB
     Indication: Maternal exposure timing unspecified
     Dosage: TRANSPLACENTAL

REACTIONS (2)
  - Meconium aspiration syndrome [Recovered/Resolved]
  - Foetal exposure during pregnancy [Unknown]
